FAERS Safety Report 10064272 (Version 4)
Quarter: 2014Q2

REPORT INFORMATION
  Report Type: Spontaneous
  Country: JP (occurrence: JP)
  Receive Date: 20140408
  Receipt Date: 20140509
  Transmission Date: 20141212
  Serious: Yes (Hospitalization)
  Sender: FDA-Public Use
  Company Number: JP-UCBSA-116935

PATIENT
  Age: 64 Year
  Sex: Female

DRUGS (3)
  1. E KEPPRA [Suspect]
     Indication: CONVULSION
     Route: 048
     Dates: start: 20140227, end: 20140326
  2. TEGRETOL [Suspect]
     Indication: CONVULSION
     Dosage: DAILY DOSE: 200MG
     Route: 048
     Dates: start: 20140227, end: 20140326
  3. BLOPRESS [Concomitant]
     Route: 048
     Dates: start: 20140319

REACTIONS (1)
  - Agranulocytosis [Recovered/Resolved]
